FAERS Safety Report 6582575-X (Version None)
Quarter: 2010Q1

REPORT INFORMATION
  Report Type: 
  Country: None (occurrence: None)
  Receive Date: 20100203
  Receipt Date: 20100121
  Transmission Date: 20100710
  Serious: Yes (Hospitalization, Other)
  Sender: FDA-Public Use
  Company Number: 230739J10USA

PATIENT
  Age: 32 Year
  Sex: Female

DRUGS (2)
  1. REBIF [Suspect]
     Indication: MULTIPLE SCLEROSIS
     Dosage: 44 MCG, 3 IN 1 WEEKS, SUBCUTANEOUS
     Route: 058
     Dates: start: 20071209
  2. IBUPROFEN [Concomitant]

REACTIONS (7)
  - BEDRIDDEN [None]
  - BLADDER DILATATION [None]
  - BLADDER SPASM [None]
  - CONFUSIONAL STATE [None]
  - MUSCULOSKELETAL DISORDER [None]
  - NEPHROLITHIASIS [None]
  - UROSEPSIS [None]
